FAERS Safety Report 9276961 (Version 2)
Quarter: 2013Q2

REPORT INFORMATION
  Report Type: Spontaneous
  Country: CH (occurrence: CH)
  Receive Date: 20130507
  Receipt Date: 20130527
  Transmission Date: 20140414
  Serious: Yes (Hospitalization)
  Sender: FDA-Public Use
  Company Number: CH-PFIZER INC-2013142147

PATIENT
  Age: 81 Year
  Sex: Female
  Weight: 60 kg

DRUGS (7)
  1. LYRICA [Suspect]
     Dosage: 150 MG, 1X/DAY
     Route: 048
     Dates: start: 20130108
  2. LYRICA [Suspect]
     Dosage: 150 MG, 2X/DAY
     Route: 048
     Dates: end: 20130404
  3. TOREM [Suspect]
     Indication: CARDIAC FAILURE
     Dosage: 10 MG, 1X/DAY
     Route: 048
  4. LISITRIL COMP [Concomitant]
     Dosage: UNK
  5. CARVEDILOL [Concomitant]
     Dosage: 12.5 UNK, 2X/DAY
  6. DIGOXIN [Concomitant]
     Dosage: 0.125 UNK, 1X/DAY
  7. OEDEMEX [Concomitant]
     Dosage: 40 UNK, AS NEEDED

REACTIONS (1)
  - Cardiac failure [Recovered/Resolved]
